FAERS Safety Report 8393605-7 (Version None)
Quarter: 2012Q2

REPORT INFORMATION
  Report Type: 
  Country: None (occurrence: None)
  Receive Date: 20120530
  Receipt Date: 20120521
  Transmission Date: 20120825
  Serious: Yes (Hospitalization, Other)
  Sender: FDA-Public Use
  Company Number: DE-BIOGENIDEC-2010BI013614

PATIENT
  Age: 54 Year
  Sex: Female
  Weight: 60 kg

DRUGS (5)
  1. TURIXIN [Concomitant]
  2. GABAPENTIN [Concomitant]
     Indication: MULTIPLE SCLEROSIS
  3. IBUPROFEN [Concomitant]
     Indication: PAIN
  4. LIORESAL [Concomitant]
     Indication: MUSCLE SPASTICITY
  5. TYSABRI [Suspect]
     Indication: MULTIPLE SCLEROSIS
     Route: 042
     Dates: start: 20080304, end: 20081215

REACTIONS (1)
  - BREAST CANCER [None]
